FAERS Safety Report 24339861 (Version 2)
Quarter: 2025Q1

REPORT INFORMATION
  Report Type: Spontaneous
  Country: US (occurrence: US)
  Receive Date: 20240919
  Receipt Date: 20250107
  Transmission Date: 20250409
  Serious: No
  Sender: PFIZER
  Company Number: US-PFIZER INC-PV202400121990

PATIENT
  Age: 47 Year
  Sex: Female

DRUGS (3)
  1. TUKYSA [Suspect]
     Active Substance: TUCATINIB
  2. TUKYSA [Suspect]
     Active Substance: TUCATINIB
     Dosage: 300 MG, 2X/DAY (TUKYSA 150MG, TAKE TWO TABLETS BY MOUTH TWICE DAILY.)
     Route: 048
  3. CAPECITABINE [Suspect]
     Active Substance: CAPECITABINE

REACTIONS (1)
  - Urinary tract infection [Unknown]
